FAERS Safety Report 20791358 (Version 1)
Quarter: 2022Q2

REPORT INFORMATION
  Report Type: Spontaneous
  Country: US (occurrence: US)
  Receive Date: 20220505
  Receipt Date: 20220505
  Transmission Date: 20220721
  Serious: No
  Sender: FDA-Public Use
  Company Number: US-SA-SAC20211229000757

PATIENT
  Age: 18 Year
  Sex: Female

DRUGS (2)
  1. DUPIXENT [Suspect]
     Active Substance: DUPILUMAB
     Indication: Dermatitis atopic
     Dosage: 300 MG, QOW
     Route: 058
     Dates: start: 20200920
  2. OMALIZUMAB [Suspect]
     Active Substance: OMALIZUMAB

REACTIONS (4)
  - Drug hypersensitivity [Unknown]
  - Erythema [Unknown]
  - Pruritus [Unknown]
  - Oropharyngeal discomfort [Unknown]
